FAERS Safety Report 15027397 (Version 1)
Quarter: 2018Q2

REPORT INFORMATION
  Report Type: Spontaneous
  Country: AT (occurrence: AT)
  Receive Date: 20180619
  Receipt Date: 20180619
  Transmission Date: 20180711
  Serious: Yes (Hospitalization)
  Sender: FDA-Public Use
  Company Number: AT-ROCHE-2139820

PATIENT
  Age: 66 Year
  Sex: Male

DRUGS (12)
  1. MOTILIUM [Concomitant]
     Active Substance: DOMPERIDONE
     Indication: NAUSEA
     Dosage: UP TO 3X1
     Route: 065
  2. SORTIS [Concomitant]
     Active Substance: ATORVASTATIN
     Dosage: 0-0-1
     Route: 065
  3. LEVETIRACETAM. [Concomitant]
     Active Substance: LEVETIRACETAM
     Dosage: 1-0-1
     Route: 065
  4. CONCOR [Concomitant]
     Active Substance: BISOPROLOL FUMARATE
     Dosage: 1-0-1
     Route: 065
  5. FORLAX [Concomitant]
     Active Substance: POLYETHYLENE GLYCOL 4000
     Indication: CONSTIPATION
     Dosage: 1-2/DAY
     Route: 065
  6. ZOFRAN [Concomitant]
     Active Substance: ONDANSETRON HYDROCHLORIDE
     Dosage: MAX 3/DAY?ONLY IN CASE OF NAUSEA
     Route: 065
  7. MEXALEN [Concomitant]
     Active Substance: ACETAMINOPHEN
     Indication: PAIN
     Dosage: MAX FOR 4 DAYS
     Route: 065
  8. PANTOPRAZOL [Concomitant]
     Active Substance: PANTOPRAZOLE SODIUM
     Dosage: 1-0-0
     Route: 065
  9. METFORMIN [Concomitant]
     Active Substance: METFORMIN HYDROCHLORIDE
     Dosage: 1-0-1
     Route: 065
  10. TECENTRIQ [Suspect]
     Active Substance: ATEZOLIZUMAB
     Indication: LUNG CANCER METASTATIC
     Route: 065
     Dates: start: 201803
  11. XARELTO [Concomitant]
     Active Substance: RIVAROXABAN
     Dosage: 1-0-0, UNTIL 24-07-2018, THEN 20MG
     Route: 065
  12. CLOPIDOGREL [Concomitant]
     Active Substance: CLOPIDOGREL BISULFATE
     Dosage: 1-0-0, UNTIL 24-07-2018
     Route: 065

REACTIONS (2)
  - Headache [Unknown]
  - Herpes zoster [Unknown]

NARRATIVE: CASE EVENT DATE: 201803
